FAERS Safety Report 6156411-X (Version None)
Quarter: 2009Q2

REPORT INFORMATION
  Report Type: 
  Country: None (occurrence: None)
  Receive Date: 20090416
  Receipt Date: 20090408
  Transmission Date: 20091009
  Serious: No
  Sender: FDA-Public Use
  Company Number: US-JNJFOC-20090402565

PATIENT
  Sex: Male
  Weight: 81.65 kg

DRUGS (6)
  1. FENTANYL TRANSDERMAL SYSTEM [Suspect]
     Indication: BACK PAIN
     Route: 062
  2. XANAX [Concomitant]
     Indication: ANXIETY
     Dosage: 1 MG,1/2 MG TABLET TID
     Route: 048
  3. LISINOPRIL [Concomitant]
     Indication: HYPERTENSION
     Route: 048
  4. PAXIL [Concomitant]
     Indication: DEPRESSION
     Route: 048
  5. REMERON [Concomitant]
     Indication: DEPRESSION
     Route: 048
  6. HYDROCODONE BITARTRATE [Concomitant]
     Indication: PAIN
     Dosage: 7.5/150 MG EVERY FOUR HOURS
     Route: 048

REACTIONS (4)
  - DEVICE LEAKAGE [None]
  - DRUG DOSE OMISSION [None]
  - FEELING ABNORMAL [None]
  - SOMNOLENCE [None]
